FAERS Safety Report 9504581 (Version 2)
Quarter: 2013Q4

REPORT INFORMATION
  Report Type: Spontaneous
  Country: BE (occurrence: BE)
  Receive Date: 20130906
  Receipt Date: 20131010
  Transmission Date: 20140711
  Serious: Yes (Hospitalization)
  Sender: FDA-Public Use
  Company Number: BE-ASTRAZENECA-2013SE66295

PATIENT
  Age: 73 Year
  Sex: Male

DRUGS (5)
  1. CRESTOR [Suspect]
     Indication: CEREBROVASCULAR ACCIDENT
     Route: 048
     Dates: start: 20130803, end: 20130810
  2. CRESTOR [Suspect]
     Indication: HYPERCHOLESTEROLAEMIA
     Route: 048
     Dates: start: 20130803, end: 20130810
  3. ZOCOR [Concomitant]
  4. ASAFLOW [Concomitant]
     Dates: start: 20100409
  5. EMCONCOR [Concomitant]
     Dates: start: 20050902

REACTIONS (2)
  - Fall [Unknown]
  - Blood creatine phosphokinase increased [Recovered/Resolved]
